FAERS Safety Report 11363824 (Version 4)
Quarter: 2015Q4

REPORT INFORMATION
  Report Type: Spontaneous
  Country: CN (occurrence: CN)
  Receive Date: 20150811
  Receipt Date: 20151203
  Transmission Date: 20160304
  Serious: Yes (Life-Threatening, Hospitalization, Other)
  Sender: FDA-Public Use
  Company Number: CN-JNJFOC-20150801691

PATIENT
  Age: 25 Year
  Sex: Female

DRUGS (2)
  1. ACETAMINOPHEN (APAP) [Suspect]
     Active Substance: ACETAMINOPHEN
     Indication: HEADACHE
     Dosage: 3 DAYS
     Route: 065
  2. ACETAMINOPHEN (APAP) [Suspect]
     Active Substance: ACETAMINOPHEN
     Route: 065

REACTIONS (9)
  - Tubulointerstitial nephritis [Recovered/Resolved]
  - Muscular weakness [Recovered/Resolved]
  - Renal tubular acidosis [Recovered/Resolved]
  - Myalgia [Recovered/Resolved]
  - Abasia [Recovered/Resolved]
  - Hypokalaemia [Recovered/Resolved]
  - Acute kidney injury [None]
  - Autoimmune haemolytic anaemia [Recovered/Resolved]
  - Rhabdomyolysis [Recovered/Resolved]
